FAERS Safety Report 8757870 (Version 1)
Quarter: 2012Q4

REPORT INFORMATION
  Report Type: Report from Study
  Country: BR (occurrence: BR)
  Receive Date: 20120828
  Receipt Date: 20120828
  Transmission Date: 20130627
  Serious: Yes (Hospitalization)
  Sender: FDA-Public Use
  Company Number: BR-ROCHE-1106688

PATIENT
  Sex: Female
  Weight: 60 kg

DRUGS (3)
  1. ROACTEMRA [Suspect]
     Indication: PRODUCT USED FOR UNKNOWN INDICATION
     Dates: start: 20100101, end: 20120813
  2. ARAVA [Concomitant]
  3. MODURETIC [Concomitant]
     Indication: HYPERTENSION

REACTIONS (1)
  - Cataract [Unknown]
